FAERS Safety Report 25958445 (Version 1)
Quarter: 2025Q4

REPORT INFORMATION
  Report Type: Spontaneous
  Country: US (occurrence: US)
  Receive Date: 20251024
  Receipt Date: 20251024
  Transmission Date: 20260117
  Serious: No
  Sender: MYLAN
  Company Number: US-MYLANLABS-2025M1086596

PATIENT
  Sex: Female
  Weight: 74.84 kg

DRUGS (4)
  1. ESTRADIOL TRANSDERMAL SYSTEM [Suspect]
     Active Substance: ESTRADIOL
     Indication: Menopause
     Dosage: 0.1 MILLIGRAM, QD (PER DAY ONCE WEEKLY)
     Dates: start: 202505
  2. ESTRADIOL TRANSDERMAL SYSTEM [Suspect]
     Active Substance: ESTRADIOL
     Dosage: 0.1 MILLIGRAM, QD (PER DAY ONCE WEEKLY)
     Route: 062
     Dates: start: 202505
  3. ESTRADIOL TRANSDERMAL SYSTEM [Suspect]
     Active Substance: ESTRADIOL
     Dosage: 0.1 MILLIGRAM, QD (PER DAY ONCE WEEKLY)
     Route: 062
     Dates: start: 202505
  4. ESTRADIOL TRANSDERMAL SYSTEM [Suspect]
     Active Substance: ESTRADIOL
     Dosage: 0.1 MILLIGRAM, QD (PER DAY ONCE WEEKLY)
     Dates: start: 202505

REACTIONS (2)
  - Wrong technique in product usage process [Unknown]
  - Product adhesion issue [Unknown]
